FAERS Safety Report 11752500 (Version 2)
Quarter: 2015Q4

REPORT INFORMATION
  Report Type: Report from Study
  Country: DE (occurrence: DE)
  Receive Date: 20151119
  Receipt Date: 20151120
  Transmission Date: 20160304
  Serious: Yes (Hospitalization)
  Sender: FDA-Public Use
  Company Number: DE-ROCHE-1593388

PATIENT
  Sex: Female

DRUGS (6)
  1. METHOTREXATE [Suspect]
     Active Substance: METHOTREXATE
     Indication: RHEUMATOID ARTHRITIS
     Route: 065
  2. PANTOZOL [Concomitant]
     Active Substance: PANTOPRAZOLE SODIUM
  3. IBUPROFEN. [Concomitant]
     Active Substance: IBUPROFEN
  4. PREDNISOLONE. [Concomitant]
     Active Substance: PREDNISOLONE
  5. RAMIPRIL. [Concomitant]
     Active Substance: RAMIPRIL
  6. RITUXIMAB [Suspect]
     Active Substance: RITUXIMAB
     Indication: RHEUMATOID ARTHRITIS
     Dosage: 20/JUL/2014 (PREVIOUS CYCLE).?LAST DOSE: 18/FEB/2015
     Route: 042

REACTIONS (3)
  - Rheumatoid nodule [Recovered/Resolved]
  - Tendon sheath incision [Recovered/Resolved]
  - Bursitis [Recovered/Resolved]
